FAERS Safety Report 6092367-6 (Version None)
Quarter: 2009Q1

REPORT INFORMATION
  Report Type: 
  Country: None (occurrence: None)
  Receive Date: 20090225
  Receipt Date: 20090223
  Transmission Date: 20090719
  Serious: Yes (Hospitalization, Other)
  Sender: FDA-Public Use
  Company Number: FR-AVENTIS-200910690FR

PATIENT
  Age: 66 Year
  Sex: Female

DRUGS (1)
  1. LOVENOX [Suspect]
     Indication: DRUG USE FOR UNKNOWN INDICATION
     Route: 058
     Dates: start: 20081120, end: 20090113

REACTIONS (1)
  - TOXIC SKIN ERUPTION [None]
